FAERS Safety Report 10647473 (Version 3)
Quarter: 2015Q1

REPORT INFORMATION
  Report Type: Spontaneous
  Country: US (occurrence: US)
  Receive Date: 20141211
  Receipt Date: 20150210
  Transmission Date: 20150720
  Serious: No
  Sender: FDA-Public Use
  Company Number: US-GLAXOSMITHKLINE-A1076393A

PATIENT

DRUGS (1)
  1. NICODERM CQ [Suspect]
     Active Substance: NICOTINE
     Indication: EX-TOBACCO USER
     Dates: start: 20140528

REACTIONS (5)
  - Application site erythema [Recovering/Resolving]
  - Abnormal dreams [Recovered/Resolved]
  - Nightmare [Recovered/Resolved]
  - Product quality issue [Unknown]
  - Poor quality sleep [Recovered/Resolved]
